FAERS Safety Report 7357669-1 (Version None)
Quarter: 2011Q1

REPORT INFORMATION
  Report Type: 
  Country: None (occurrence: None)
  Receive Date: 20110317
  Receipt Date: 20110307
  Transmission Date: 20110831
  Serious: Yes (Other)
  Sender: FDA-Public Use
  Company Number: US-JNJFOC-20110305787

PATIENT
  Sex: Female
  Weight: 74.83 kg

DRUGS (5)
  1. PRILOSEC [Concomitant]
     Indication: PRODUCT USED FOR UNKNOWN INDICATION
     Route: 048
  2. PRAVASTATIN [Concomitant]
     Indication: BLOOD CHOLESTEROL ABNORMAL
     Route: 065
  3. IBUPROFEN [Suspect]
     Indication: BACK PAIN
     Route: 048
  4. IBUPROFEN [Suspect]
     Indication: NECK PAIN
     Route: 048
  5. IBUPROFEN [Suspect]
     Indication: ARTHRITIS
     Route: 048

REACTIONS (4)
  - SWOLLEN TONGUE [None]
  - EYE SWELLING [None]
  - CHEST DISCOMFORT [None]
  - LIP SWELLING [None]
